FAERS Safety Report 9006095 (Version 8)
Quarter: 2013Q2

REPORT INFORMATION
  Report Type: Report from Study
  Country: CO (occurrence: CO)
  Receive Date: 20130109
  Receipt Date: 20130506
  Transmission Date: 20140414
  Serious: Yes (Death, Hospitalization, Other)
  Sender: FDA-Public Use
  Company Number: PHHY2013CO001678

PATIENT
  Age: 48 Year
  Sex: Male

DRUGS (20)
  1. SANDOSTATIN LAR [Suspect]
     Indication: ACROMEGALY
     Dosage: 30 MG, MONTHLY
     Route: 030
     Dates: start: 20120217
  2. SANDOSTATIN LAR [Suspect]
     Dosage: 30 MG, MONTHLY
     Route: 030
     Dates: start: 20120223
  3. SANDOSTATIN LAR [Suspect]
     Dosage: 30 MG, MONTHLY
     Route: 030
     Dates: start: 20120305, end: 20130219
  4. SANDOSTATIN LAR [Suspect]
     Dosage: 20 MG
     Route: 030
  5. TESTOSTERONE [Concomitant]
     Dosage: 10 MG, EVERY MONTH
  6. HYDROCHLOROTHIAZIDE [Concomitant]
     Dosage: UNK UKN, UNK
  7. LOVASTATIN [Concomitant]
     Dosage: UNK UKN, UNK
  8. PRAZOSIN [Concomitant]
     Dosage: 1 MG/DAY
  9. COLCHICINE [Concomitant]
     Dosage: 0.5 MG/DAY
  10. AMITRIPTYLINE [Concomitant]
     Dosage: 25 MG/DAY
  11. FLUOXETINE [Concomitant]
     Dosage: 20 MG/DAY
  12. ACETAMINOPHEN [Concomitant]
     Dosage: UNK UKN, EVERY 6 HOURS
  13. CODEINE [Concomitant]
     Dosage: UNK UKN, EVERY 6 HOURS
  14. OMEPRAZOLE [Concomitant]
     Dosage: 20 MG/DAY
  15. TESTOSTERONE UNDECANOATE [Concomitant]
     Dosage: UNK UKN, EVERY 3 MONTHS
  16. BETHA [Concomitant]
     Dosage: UNK UKN, UNK
  17. FENTANYL [Concomitant]
     Dosage: UNK UKN, UNK
  18. MIDAZOLAM [Concomitant]
     Dosage: UNK UKN, UNK
  19. RANITIDINE [Concomitant]
     Dosage: UNK UKN, UNK
  20. FOLIC ACID [Concomitant]
     Dosage: UNK UKN, UNK

REACTIONS (12)
  - Death [Fatal]
  - Colon cancer [Unknown]
  - Skin induration [Not Recovered/Not Resolved]
  - Mobility decreased [Not Recovered/Not Resolved]
  - Cyanosis [Not Recovered/Not Resolved]
  - Peripheral coldness [Not Recovered/Not Resolved]
  - Polyp [Unknown]
  - Rectal haemorrhage [Unknown]
  - Scleroderma [Not Recovered/Not Resolved]
  - Pneumonia [Unknown]
  - Walking disability [Not Recovered/Not Resolved]
  - General physical health deterioration [Not Recovered/Not Resolved]
